FAERS Safety Report 8558718-5 (Version None)
Quarter: 2012Q3

REPORT INFORMATION
  Report Type: 
  Country: None (occurrence: None)
  Receive Date: 20120801
  Receipt Date: 20120725
  Transmission Date: 20120928
  Serious: Yes (Hospitalization)
  Sender: FDA-Public Use
  Company Number: JP-FRI-1000037486

PATIENT
  Age: 78 Year
  Sex: Male

DRUGS (2)
  1. ARICEPT [Concomitant]
     Dosage: 10 MG
     Dates: end: 20120719
  2. MEMANTINE HCL [Suspect]
     Indication: DEMENTIA ALZHEIMER'S TYPE
     Dosage: 20 MG
     Route: 048
     Dates: end: 20120719

REACTIONS (1)
  - TIC [None]
